FAERS Safety Report 8068654-9 (Version None)
Quarter: 2012Q1

REPORT INFORMATION
  Report Type: 
  Country: None (occurrence: None)
  Receive Date: 20120124
  Receipt Date: 20111107
  Transmission Date: 20120608
  Serious: No
  Sender: FDA-Public Use
  Company Number: US-AMGEN-USASP2011058100

PATIENT
  Age: 86 Year
  Sex: Female

DRUGS (3)
  1. PROLIA [Suspect]
     Indication: OSTEOPOROSIS POSTMENOPAUSAL
     Dosage: 60 MG, Q6MO
     Dates: start: 20110824, end: 20110824
  2. LEVOTHYROXINE SODIUM [Concomitant]
     Dosage: UNK
  3. CALCIUM + VITAMIN D [Concomitant]

REACTIONS (2)
  - BONE PAIN [None]
  - PAIN IN EXTREMITY [None]
